FAERS Safety Report 5032186-2 (Version None)
Quarter: 2006Q2

REPORT INFORMATION
  Report Type: 
  Country: None (occurrence: None)
  Receive Date: 20060619
  Receipt Date: 20060612
  Transmission Date: 20061013
  Serious: Yes (Other)
  Sender: FDA-Public Use
  Company Number: 2006-05-2117

PATIENT
  Age: 81 Year
  Sex: Male

DRUGS (2)
  1. CELESTAMINE TAB [Suspect]
     Indication: ECZEMA
     Dosage: 1 TABLET QD ORAL
     Route: 048
     Dates: start: 20060526, end: 20060602
  2. SEDATIVE/HYPNOTIC (NOS) [Concomitant]

REACTIONS (1)
  - HALLUCINATION [None]
